FAERS Safety Report 15151396 (Version 1)
Quarter: 2018Q3

REPORT INFORMATION
  Report Type: Spontaneous
  Country: US (occurrence: US)
  Receive Date: 20180716
  Receipt Date: 20180716
  Transmission Date: 20181010
  Serious: Yes (Hospitalization)
  Sender: FDA-Public Use
  Company Number: US-NEUROCRINE BIOSCIENCES INC.-2018NBI02097

PATIENT
  Sex: Female

DRUGS (5)
  1. INGREZZA [Suspect]
     Active Substance: VALBENAZINE
  2. INGREZZA [Suspect]
     Active Substance: VALBENAZINE
     Indication: TARDIVE DYSKINESIA
  3. INGREZZA [Suspect]
     Active Substance: VALBENAZINE
  4. INGREZZA [Suspect]
     Active Substance: VALBENAZINE
  5. INGREZZA [Suspect]
     Active Substance: VALBENAZINE

REACTIONS (2)
  - Hospitalisation [Unknown]
  - Parkinsonism [Recovered/Resolved]
